FAERS Safety Report 26075099 (Version 1)
Quarter: 2025Q4

REPORT INFORMATION
  Report Type: Spontaneous
  Country: CA (occurrence: CA)
  Receive Date: 20251121
  Receipt Date: 20251121
  Transmission Date: 20260118
  Serious: Yes (Death, Hospitalization, Other)
  Sender: APOTEX
  Company Number: CA-APOTEX-2022AP009527

PATIENT
  Age: 57 Year
  Sex: Male

DRUGS (3)
  1. FINGOLIMOD [Suspect]
     Active Substance: FINGOLIMOD
     Indication: Relapsing-remitting multiple sclerosis
     Dosage: UNK
     Route: 065
  2. MEFLOQUINE [Concomitant]
     Active Substance: MEFLOQUINE
     Indication: Product used for unknown indication
     Route: 065
  3. MIRTAZAPINE [Concomitant]
     Active Substance: MIRTAZAPINE
     Indication: Product used for unknown indication
     Route: 065

REACTIONS (10)
  - Hemiparesis [Fatal]
  - Asthenia [Fatal]
  - Central nervous system lesion [Fatal]
  - Immune reconstitution inflammatory syndrome [Fatal]
  - Cerebral disorder [Fatal]
  - Lymphocyte count decreased [Fatal]
  - Ataxia [Fatal]
  - Dysarthria [Fatal]
  - Dysphagia [Fatal]
  - Progressive multifocal leukoencephalopathy [Unknown]
